FAERS Safety Report 5026678-X (Version None)
Quarter: 2006Q2

REPORT INFORMATION
  Report Type: 
  Country: None (occurrence: None)
  Receive Date: 20060615
  Receipt Date: 20060612
  Transmission Date: 20061013
  Serious: Yes (Other)
  Sender: FDA-Public Use
  Company Number: NL-GLAXOSMITHKLINE-B0427531A

PATIENT
  Age: 41 Year
  Sex: Female
  Weight: 70 kg

DRUGS (1)
  1. PAROXETINE HCL [Suspect]
     Indication: DEPRESSION
     Dates: start: 20050501

REACTIONS (13)
  - ANOREXIA [None]
  - DISINHIBITION [None]
  - DIZZINESS [None]
  - DRUG DEPENDENCE [None]
  - DYSKINESIA [None]
  - FEELING ABNORMAL [None]
  - INDIFFERENCE [None]
  - PALPITATIONS [None]
  - PERSONALITY CHANGE [None]
  - RESTLESSNESS [None]
  - SUSPICIOUSNESS [None]
  - SWELLING FACE [None]
  - WEIGHT INCREASED [None]
